FAERS Safety Report 7370012-7 (Version None)
Quarter: 2011Q1

REPORT INFORMATION
  Report Type: 
  Country: None (occurrence: None)
  Receive Date: 20110323
  Receipt Date: 20110309
  Transmission Date: 20110831
  Serious: Yes (Other)
  Sender: FDA-Public Use
  Company Number: PHHY2011FR19738

PATIENT
  Sex: Female

DRUGS (2)
  1. ZOMETA [Suspect]
     Indication: METASTASES TO BONE
     Dosage: 4 MG, EVERY 21 DAYS
     Route: 042
     Dates: start: 20100101, end: 20100801
  2. AVASTIN [Suspect]
     Indication: METASTASES TO BONE
     Dosage: 15 MG/KG,  EVERY 21 DAYS
     Dates: start: 20100101, end: 20100801

REACTIONS (2)
  - OSTEONECROSIS OF JAW [None]
  - TOOTH INFECTION [None]
